FAERS Safety Report 15809047 (Version 2)
Quarter: 2019Q1

REPORT INFORMATION
  Report Type: Report from Study
  Country: US (occurrence: US)
  Receive Date: 20190110
  Receipt Date: 20190210
  Transmission Date: 20190417
  Serious: Yes (Other)
  Sender: FDA-Public Use
  Company Number: PHEH2019US000645

PATIENT
  Age: 76 Year
  Sex: Female
  Weight: 84.6 kg

DRUGS (3)
  1. MEKINIST [Suspect]
     Active Substance: TRAMETINIB DIMETHYL SULFOXIDE
     Dosage: 1.5 MG, UNK
     Route: 048
  2. TAXOL [Concomitant]
     Active Substance: PACLITAXEL
     Indication: OVARIAN CANCER
     Dosage: QW
     Route: 065
  3. MEKINIST [Suspect]
     Active Substance: TRAMETINIB DIMETHYL SULFOXIDE
     Indication: OVARIAN CANCER
     Dosage: 2 MG, QD
     Route: 048
     Dates: start: 20180807, end: 20181214

REACTIONS (8)
  - Malignant neoplasm progression [Unknown]
  - Stomatitis [Recovering/Resolving]
  - Epistaxis [Recovering/Resolving]
  - Blepharitis [Recovering/Resolving]
  - Blood pressure increased [Recovering/Resolving]
  - Rash [Recovering/Resolving]
  - Ovarian cancer [Unknown]
  - Product use in unapproved indication [Unknown]

NARRATIVE: CASE EVENT DATE: 20180820
